FAERS Safety Report 18241836 (Version 1)
Quarter: 2020Q3

REPORT INFORMATION
  Report Type: Spontaneous
  Country: US (occurrence: US)
  Receive Date: 20200908
  Receipt Date: 20200908
  Transmission Date: 20201103
  Serious: Yes (Other)
  Sender: FDA-Public Use
  Company Number: US-BAYER-2020-179467

PATIENT
  Sex: Female

DRUGS (2)
  1. GADAVIST [Suspect]
     Active Substance: GADOBUTROL
     Indication: BREAST SCAN
     Dosage: 5 MG, ONCE
     Dates: start: 20200722, end: 20200722
  2. NORVASC [Concomitant]
     Active Substance: AMLODIPINE BESYLATE
     Indication: HYPERTENSION
     Dosage: UNK

REACTIONS (6)
  - Headache [None]
  - Mental impairment [Not Recovered/Not Resolved]
  - Dizziness [None]
  - Dysphemia [None]
  - Muscular weakness [None]
  - Heart rate increased [None]

NARRATIVE: CASE EVENT DATE: 20200723
